FAERS Safety Report 4738678-5 (Version None)
Quarter: 2005Q3

REPORT INFORMATION
  Report Type: 
  Country: None (occurrence: None)
  Receive Date: 20050809
  Receipt Date: 20050809
  Transmission Date: 20060218
  Serious: Yes (Life-Threatening)
  Sender: FDA-Public Use
  Company Number: None

PATIENT
  Age: 49 Year
  Sex: Male
  Weight: 135.1719 kg

DRUGS (2)
  1. POTASSIUM CHLORIDE [Suspect]
     Indication: BLOOD POTASSIUM DECREASED
     Dosage: 2 X20MEQS   BID   ORAL
     Route: 048
     Dates: start: 20050601, end: 20050728
  2. POTASSIUM CHLORIDE [Suspect]
     Indication: LIDDLE'S SYNDROME
     Dosage: 2 X20MEQS   BID   ORAL
     Route: 048
     Dates: start: 20050601, end: 20050728

REACTIONS (3)
  - BLOOD POTASSIUM DECREASED [None]
  - PHARMACEUTICAL PRODUCT COMPLAINT [None]
  - UNDERDOSE [None]
